FAERS Safety Report 17982376 (Version 4)
Quarter: 2021Q2

REPORT INFORMATION
  Report Type: Spontaneous
  Country: US (occurrence: US)
  Receive Date: 20200706
  Receipt Date: 20210628
  Transmission Date: 20210717
  Serious: Yes (Other)
  Sender: FDA-Public Use
  Company Number: US-GILEAD-2020-0478281

PATIENT
  Age: 36 Year
  Sex: Female
  Weight: 68.93 kg

DRUGS (34)
  1. TRUVADA [Suspect]
     Active Substance: EMTRICITABINE\TENOFOVIR DISOPROXIL FUMARATE
     Indication: HIV INFECTION
     Dosage: UNK
     Route: 048
     Dates: start: 201302, end: 201709
  2. ATRIPLA [Suspect]
     Active Substance: EFAVIRENZ\EMTRICITABINE\TENOFOVIR DISOPROXIL FUMARATE
     Dosage: UNK
     Route: 048
     Dates: start: 2006, end: 2019
  3. ASPIRIN (E.C.) [Concomitant]
     Active Substance: ASPIRIN
  4. NAPROXEN. [Concomitant]
     Active Substance: NAPROXEN
  5. GENVOYA [Concomitant]
     Active Substance: COBICISTAT\ELVITEGRAVIR\EMTRICITABINE\TENOFOVIR ALAFENAMIDE FUMARATE
  6. PHENYTOIN SODIUM. [Concomitant]
     Active Substance: PHENYTOIN SODIUM
  7. ATRIPLA [Suspect]
     Active Substance: EFAVIRENZ\EMTRICITABINE\TENOFOVIR DISOPROXIL FUMARATE
     Indication: HIV INFECTION
     Dosage: UNK
     Route: 048
     Dates: start: 201403, end: 20180209
  8. AMOXICILLIN. [Concomitant]
     Active Substance: AMOXICILLIN
  9. GADOTERIDOL [Concomitant]
     Active Substance: GADOTERIDOL
  10. CALCIUM/VITAMIN D [CALCIUM CARBONATE;ERGOCALCIFEROL] [Concomitant]
  11. CALCIUM [Concomitant]
     Active Substance: CALCIUM
  12. DICLOFENAC [Concomitant]
     Active Substance: DICLOFENAC
  13. CONRAY (M I) [Concomitant]
  14. GADODIAMIDE [Concomitant]
     Active Substance: GADODIAMIDE
  15. PROZAC [Concomitant]
     Active Substance: FLUOXETINE HYDROCHLORIDE
  16. PAXIL CR [Concomitant]
     Active Substance: PAROXETINE HYDROCHLORIDE
  17. SERTRALINE HCL [Concomitant]
     Active Substance: SERTRALINE HYDROCHLORIDE
  18. DILANTIN D.A. [Concomitant]
     Active Substance: PHENYTOIN SODIUM
  19. ZOLOFT [Concomitant]
     Active Substance: SERTRALINE HYDROCHLORIDE
  20. CORTISONE [Concomitant]
     Active Substance: CORTISONE
  21. PREDNISOLONE. [Concomitant]
     Active Substance: PREDNISOLONE
  22. VIREAD [Suspect]
     Active Substance: TENOFOVIR DISOPROXIL FUMARATE
     Indication: HIV INFECTION
     Dosage: UNK
     Route: 048
     Dates: start: 201302, end: 2017
  23. IBUPROFEN. [Concomitant]
     Active Substance: IBUPROFEN
  24. LIPIODOL [Concomitant]
     Active Substance: ETHIODIZED OIL
  25. GADOBUTROL. [Concomitant]
     Active Substance: GADOBUTROL
  26. LEVETIRACETAM. [Concomitant]
     Active Substance: LEVETIRACETAM
  27. KEPPRA XR [Concomitant]
     Active Substance: LEVETIRACETAM
  28. INFLUENZA VACCINE [Concomitant]
     Active Substance: INFLUENZA VIRUS VACCINE
  29. TYLENOL [Concomitant]
     Active Substance: ACETAMINOPHEN
  30. PENICILLIN B [Concomitant]
     Active Substance: PHENETICILLIN
  31. IODIPAMIDE MEGLUMINE [Concomitant]
     Active Substance: IODIPAMIDE MEGLUMINE
  32. CYSTOGRAFIN [Concomitant]
     Active Substance: DIATRIZOATE MEGLUMINE
  33. BACTRIM [Concomitant]
     Active Substance: SULFAMETHOXAZOLE\TRIMETHOPRIM
  34. MAVYRET [Concomitant]
     Active Substance: GLECAPREVIR\PIBRENTASVIR

REACTIONS (13)
  - Multiple fractures [Unknown]
  - Bone density decreased [Unknown]
  - Mobility decreased [Not Recovered/Not Resolved]
  - Multiple fractures [Not Recovered/Not Resolved]
  - Back pain [Unknown]
  - Osteonecrosis [Unknown]
  - Anxiety [Not Recovered/Not Resolved]
  - Depression [Not Recovered/Not Resolved]
  - Renal injury [Unknown]
  - Bone loss [Unknown]
  - Osteopenia [Unknown]
  - Osteoporosis [Unknown]
  - Skeletal injury [Unknown]

NARRATIVE: CASE EVENT DATE: 2017
